FAERS Safety Report 7579192-1 (Version None)
Quarter: 2011Q2

REPORT INFORMATION
  Report Type: 
  Country: None (occurrence: None)
  Receive Date: 20110628
  Receipt Date: 20110623
  Transmission Date: 20111010
  Serious: Yes (Death)
  Sender: FDA-Public Use
  Company Number: US-GILEAD-2011-0041027

PATIENT
  Sex: Male

DRUGS (3)
  1. LETAIRIS [Suspect]
     Indication: HEPATIC CIRRHOSIS
  2. LETAIRIS [Suspect]
     Indication: PORTAL HYPERTENSION
  3. LETAIRIS [Suspect]
     Indication: PULMONARY HYPERTENSION
     Route: 048
     Dates: start: 20110414, end: 20110618

REACTIONS (2)
  - PNEUMONIA [None]
  - RESPIRATORY FAILURE [None]
